FAERS Safety Report 8791362 (Version 1)
Quarter: 2012Q4

REPORT INFORMATION
  Report Type: Spontaneous
  Country: US (occurrence: None)
  Receive Date: 20120914
  Receipt Date: 20120914
  Transmission Date: 20130627
  Serious: Yes (Other)
  Sender: FDA-Public Use
  Company Number: None

PATIENT
  Age: 80 Year
  Sex: Female
  Weight: 70.31 kg

DRUGS (1)
  1. BACTRIM [Suspect]
     Indication: UTI
     Route: 048
     Dates: start: 20120622, end: 20120701

REACTIONS (3)
  - Pruritus [None]
  - Procedural pain [None]
  - Carpal tunnel syndrome [None]
